FAERS Safety Report 23817490 (Version 3)
Quarter: 2025Q3

REPORT INFORMATION
  Report Type: Spontaneous
  Country: US (occurrence: US)
  Receive Date: 20240505
  Receipt Date: 20250918
  Transmission Date: 20251021
  Serious: No
  Sender: SANOFI AVENTIS
  Company Number: US-SA-SAC20240425000539

PATIENT
  Age: 15 Year
  Sex: Male
  Weight: 40 kg

DRUGS (10)
  1. DUPIXENT [Suspect]
     Active Substance: DUPILUMAB
     Indication: Eosinophilic oesophagitis
     Dosage: 300 MG, QOW
     Route: 058
     Dates: start: 20240501
  2. SUMATRIPTAN [Concomitant]
     Active Substance: SUMATRIPTAN
  3. SERTRALINE [Concomitant]
     Active Substance: SERTRALINE HYDROCHLORIDE
  4. Triamcinolon [Concomitant]
  5. ESOMEPRAZOLE MAGNESIUM [Concomitant]
     Active Substance: ESOMEPRAZOLE MAGNESIUM
  6. ESOMEPRAZOLE MAGNESIUM [Concomitant]
     Active Substance: ESOMEPRAZOLE MAGNESIUM
  7. MELOXICAM [Concomitant]
     Active Substance: MELOXICAM
  8. HYDROXYZINE HYDROCHLORIDE [Concomitant]
     Active Substance: HYDROXYZINE HYDROCHLORIDE
  9. CYPROHEPTADINE HYDROCHLORIDE [Concomitant]
     Active Substance: CYPROHEPTADINE HYDROCHLORIDE
  10. BUDESONIDE [Concomitant]
     Active Substance: BUDESONIDE

REACTIONS (3)
  - Eosinophilic oesophagitis [Unknown]
  - Off label use [Unknown]
  - Drug ineffective [Unknown]

NARRATIVE: CASE EVENT DATE: 20240501
